FAERS Safety Report 10221914 (Version 1)
Quarter: 2014Q2

REPORT INFORMATION
  Report Type: Report from Study
  Country: GB (occurrence: GB)
  Receive Date: 20140606
  Receipt Date: 20140606
  Transmission Date: 20141212
  Serious: No
  Sender: FDA-Public Use
  Company Number: GB-BIOMARINAP-GB-2013-101915

PATIENT
  Age: 17 Year
  Sex: Male
  Weight: 67 kg

DRUGS (1)
  1. NAGLAZYME [Suspect]
     Indication: MUCOPOLYSACCHARIDOSIS VI
     Dosage: 65 MG, QW
     Route: 041
     Dates: start: 20061015

REACTIONS (1)
  - Subcutaneous abscess [Not Recovered/Not Resolved]
